FAERS Safety Report 9123095 (Version 1)
Quarter: 2013Q1

REPORT INFORMATION
  Report Type: Spontaneous
  Country: US (occurrence: None)
  Receive Date: 20130225
  Receipt Date: 20130225
  Transmission Date: 20140127
  Serious: No
  Sender: FDA-Public Use
  Company Number: None

PATIENT
  Age: 95 Year
  Sex: Female
  Weight: 60.33 kg

DRUGS (2)
  1. FENTANYL [Suspect]
     Indication: PAIN
     Dosage: 12MCG/HR  1 PATCH Q 72H  TOP
     Route: 061
     Dates: start: 20111217, end: 20130221
  2. FENTANYL [Suspect]
     Indication: OSTEOARTHRITIS
     Dosage: 25MCG/HR  1 PATCH Q 72H
     Dates: start: 20100915, end: 20130221

REACTIONS (2)
  - Product packaging issue [None]
  - Incorrect dose administered [None]
